FAERS Safety Report 11778534 (Version 3)
Quarter: 2021Q4

REPORT INFORMATION
  Report Type: Spontaneous
  Country: FR (occurrence: FR)
  Receive Date: 20151125
  Receipt Date: 20211210
  Transmission Date: 20220303
  Serious: Yes (Death)
  Sender: FDA-Public Use
  Company Number: PHHY2015FR153563

PATIENT
  Age: 30 Year
  Sex: Female

DRUGS (7)
  1. OLANZAPINE [Interacting]
     Active Substance: OLANZAPINE
     Indication: Product used for unknown indication
     Dosage: UNK
     Route: 065
  2. CODEINE PHOSPHATE [Interacting]
     Active Substance: CODEINE PHOSPHATE
     Indication: Product used for unknown indication
     Dosage: UNK
     Route: 065
  3. ALCOHOL [Interacting]
     Active Substance: ALCOHOL
     Indication: Product used for unknown indication
     Dosage: UNK
     Route: 048
  4. TETRAZEPAM [Interacting]
     Active Substance: TETRAZEPAM
     Indication: Product used for unknown indication
     Dosage: UNK
     Route: 065
  5. ALPRAZOLAM [Interacting]
     Active Substance: ALPRAZOLAM
     Indication: Product used for unknown indication
     Dosage: UNK
     Route: 065
  6. OXAZEPAM [Suspect]
     Active Substance: OXAZEPAM
     Indication: Product used for unknown indication
     Dosage: UNK
     Route: 065
  7. FENTANYL [Interacting]
     Active Substance: FENTANYL
     Indication: Product used for unknown indication
     Dosage: 4X 12 MICROG/H
     Route: 062

REACTIONS (2)
  - Drug interaction [Fatal]
  - Toxicity to various agents [Fatal]
